FAERS Safety Report 4422414-6 (Version None)
Quarter: 2004Q3

REPORT INFORMATION
  Report Type: 
  Country: None (occurrence: None)
  Receive Date: 20040806
  Receipt Date: 20040719
  Transmission Date: 20050211
  Serious: Yes (Other)
  Sender: FDA-Public Use
  Company Number: USA040773090

PATIENT
  Age: 56 Year
  Sex: Female

DRUGS (3)
  1. FORTEO [Suspect]
     Indication: OSTEOPOROSIS
     Dates: start: 20040407
  2. HUMALOG [Suspect]
     Indication: DIABETES MELLITUS
  3. SYNTHROID [Concomitant]

REACTIONS (3)
  - BLOOD GLUCOSE INCREASED [None]
  - GLYCOSYLATED HAEMOGLOBIN INCREASED [None]
  - PHARMACEUTICAL PRODUCT COMPLAINT [None]
